FAERS Safety Report 7648937-4 (Version None)
Quarter: 2011Q3

REPORT INFORMATION
  Report Type: 
  Country: None (occurrence: None)
  Receive Date: 20110801
  Receipt Date: 20110722
  Transmission Date: 20111222
  Serious: Yes (Other)
  Sender: FDA-Public Use
  Company Number: IT-B.I. PHARMACEUTICALS,INC./RIDGEFIELD-2011-DE-04241GD

PATIENT
  Sex: Male

DRUGS (1)
  1. PRAMIPEXOLE DIHYDROCHLORIDE [Suspect]
     Indication: RESTLESS LEGS SYNDROME
     Dosage: 0.18 MG

REACTIONS (4)
  - HYPERSEXUALITY [None]
  - PATHOLOGICAL GAMBLING [None]
  - DOPAMINE DYSREGULATION SYNDROME [None]
  - ERECTILE DYSFUNCTION [None]
